FAERS Safety Report 17313302 (Version 1)
Quarter: 2020Q1

REPORT INFORMATION
  Report Type: Spontaneous
  Country: IT (occurrence: IT)
  Receive Date: 20200124
  Receipt Date: 20200124
  Transmission Date: 20200409
  Serious: Yes (Hospitalization)
  Sender: FDA-Public Use
  Company Number: IT-ASTRAZENECA-2020SE09482

PATIENT
  Age: 5 Year
  Sex: Male

DRUGS (2)
  1. PHENYTOIN. [Interacting]
     Active Substance: PHENYTOIN
     Indication: NERVOUS SYSTEM DISORDER PROPHYLAXIS
     Route: 042
  2. OMEPRAZOLE. [Suspect]
     Active Substance: OMEPRAZOLE
     Route: 065

REACTIONS (6)
  - Drug interaction [Recovering/Resolving]
  - Nystagmus [Recovering/Resolving]
  - Mydriasis [Recovering/Resolving]
  - Drug level above therapeutic [Recovering/Resolving]
  - Off label use [Unknown]
  - Loss of consciousness [Recovering/Resolving]
